FAERS Safety Report 5064504-3 (Version None)
Quarter: 2006Q3

REPORT INFORMATION
  Report Type: 
  Country: None (occurrence: None)
  Receive Date: 20060728
  Receipt Date: 20060703
  Transmission Date: 20061208
  Serious: Yes (Other)
  Sender: FDA-Public Use
  Company Number: PHNR2006AU00870

PATIENT
  Age: 37 Year
  Sex: Male

DRUGS (1)
  1. GLEEVEC [Suspect]
     Dates: start: 20041006

REACTIONS (1)
  - LEIOMYOMA [None]
